FAERS Safety Report 4393868-9 (Version None)
Quarter: 2004Q3

REPORT INFORMATION
  Report Type: 
  Country: None (occurrence: None)
  Receive Date: 20040702
  Receipt Date: 20040621
  Transmission Date: 20050211
  Serious: Yes (Hospitalization)
  Sender: FDA-Public Use
  Company Number: 03P-163-0239449-00

PATIENT
  Age: 72 Year
  Sex: Female

DRUGS (17)
  1. HUMIRA [Suspect]
     Indication: RHEUMATOID ARTHRITIS
     Dosage: 40 MG, 1 IN 2 WK, SUBCUTANEOUS
     Route: 058
     Dates: start: 20030801, end: 20030901
  2. PROPACET 100 [Concomitant]
  3. PRANDIN [Concomitant]
  4. RAMIPRIL [Concomitant]
  5. DIAZEPAM [Concomitant]
  6. PREDNISONE [Concomitant]
  7. ESOMEPRAZOLE [Concomitant]
  8. ASPIRIN [Concomitant]
  9. MULTI-VITAMINS [Concomitant]
  10. GABAPENTIN [Concomitant]
  11. AMOXICILLIN AND CLAVULANATE POTASSIUM [Concomitant]
  12. GLYBURIDE [Concomitant]
  13. OMEPRAZOLE [Concomitant]
  14. INSULIN [Concomitant]
  15. GEMEPRO [Concomitant]
  16. DIAZEPAM [Concomitant]
  17. PROPACET 100 [Concomitant]

REACTIONS (4)
  - CELLULITIS [None]
  - DIABETES MELLITUS INADEQUATE CONTROL [None]
  - ENDOCARDITIS BACTERIAL [None]
  - URINARY TRACT INFECTION [None]
